FAERS Safety Report 10062771 (Version 2)
Quarter: 2014Q2

REPORT INFORMATION
  Report Type: Report from Study
  Country: JP (occurrence: JP)
  Receive Date: 20140407
  Receipt Date: 20140605
  Transmission Date: 20141212
  Serious: Yes (Death, Other)
  Sender: FDA-Public Use
  Company Number: JP-ABBVIE-14P-087-1221610-00

PATIENT
  Age: 72 Year
  Sex: Male
  Weight: 53.8 kg

DRUGS (2)
  1. LIPACREON CAPSULES 150MG [Suspect]
     Indication: PANCREATIC INSUFFICIENCY
     Route: 048
     Dates: start: 20120606
  2. FAMOTIDINE [Concomitant]
     Indication: PANCREATIC INSUFFICIENCY
     Route: 048

REACTIONS (1)
  - Bile duct cancer recurrent [Fatal]
